FAERS Safety Report 16733017 (Version 1)
Quarter: 2019Q3

REPORT INFORMATION
  Report Type: Spontaneous
  Country: PT (occurrence: PT)
  Receive Date: 20190823
  Receipt Date: 20190823
  Transmission Date: 20191005
  Serious: Yes (Other)
  Sender: FDA-Public Use
  Company Number: PT-009507513-1908PRT007296

PATIENT
  Age: 10 Year
  Sex: Male
  Weight: 50 kg

DRUGS (2)
  1. SINGULAIR [Suspect]
     Active Substance: MONTELUKAST SODIUM
     Indication: ASTHMA
     Dosage: 5 MG/DAY; FORMULATION: CHEWABLE TABLET
     Route: 048
     Dates: start: 201904, end: 20190731
  2. FLUTIFORM [Concomitant]
     Active Substance: FLUTICASONE PROPIONATE\FORMOTEROL FUMARATE
     Indication: ASTHMA
     Dosage: FORMULATION: PRESSURIZED SUSPENSION FOR INHALATION
     Route: 055

REACTIONS (4)
  - Weight increased [Recovering/Resolving]
  - Tic [Recovering/Resolving]
  - Morbid thoughts [Recovering/Resolving]
  - Depressed mood [Recovering/Resolving]

NARRATIVE: CASE EVENT DATE: 20190515
